FAERS Safety Report 12811362 (Version 1)
Quarter: 2016Q4

REPORT INFORMATION
  Report Type: Spontaneous
  Country: US (occurrence: US)
  Receive Date: 20161005
  Receipt Date: 20161005
  Transmission Date: 20170207
  Serious: No
  Sender: FDA-Public Use
  Company Number: US-BAUSCH-BL-2016-000170

PATIENT
  Age: 80 Year
  Sex: Male
  Weight: 93.07 kg

DRUGS (1)
  1. TIMOPTIC [Suspect]
     Active Substance: TIMOLOL MALEATE
     Indication: GLAUCOMA
     Route: 047
     Dates: start: 1986

REACTIONS (2)
  - Reaction to preservatives [Unknown]
  - Heart rate decreased [Recovered/Resolved]
